FAERS Safety Report 22049642 (Version 1)
Quarter: 2023Q1

REPORT INFORMATION
  Report Type: Spontaneous
  Country: DK (occurrence: DK)
  Receive Date: 20230301
  Receipt Date: 20230301
  Transmission Date: 20230418
  Serious: Yes (Life-Threatening, Hospitalization)
  Sender: FDA-Public Use
  Company Number: None

PATIENT
  Age: 91 Year
  Sex: Male

DRUGS (1)
  1. DICLOXACILLIN SODIUM [Suspect]
     Active Substance: DICLOXACILLIN SODIUM
     Indication: Infection
     Dosage: 3000 MG,QD
     Route: 048
     Dates: start: 20221108

REACTIONS (2)
  - Suspected transmission of an infectious agent via product [Unknown]
  - Urinary tract infection [Recovering/Resolving]
